FAERS Safety Report 4942562-1 (Version None)
Quarter: 2006Q1

REPORT INFORMATION
  Report Type: 
  Country: None (occurrence: None)
  Receive Date: 20060313
  Receipt Date: 20050415
  Transmission Date: 20060701
  Serious: No
  Sender: FDA-Public Use
  Company Number: US-GLAXOSMITHKLINE-A0555122A

PATIENT
  Age: 36 Year
  Sex: Female

DRUGS (2)
  1. NICORETTE (MINT) [Suspect]
  2. PRIMATENE NASAL MIST [Concomitant]

REACTIONS (1)
  - ORAL MUCOSAL DISCOLOURATION [None]
